FAERS Safety Report 18553646 (Version 2)
Quarter: 2020Q4

REPORT INFORMATION
  Report Type: Report from Study
  Country: CA (occurrence: CA)
  Receive Date: 20201127
  Receipt Date: 20201223
  Transmission Date: 20210114
  Serious: Yes (Other)
  Sender: FDA-Public Use
  Company Number: NVSC2020CA302294

PATIENT
  Age: 59 Year
  Sex: Female

DRUGS (1)
  1. MAYZENT [Suspect]
     Active Substance: SIPONIMOD
     Indication: SECONDARY PROGRESSIVE MULTIPLE SCLEROSIS
     Dosage: UNK
     Route: 048
     Dates: start: 20201027

REACTIONS (5)
  - Peripheral swelling [Unknown]
  - Joint stiffness [Unknown]
  - Limb discomfort [Unknown]
  - Product dose omission issue [Unknown]
  - Infection [Unknown]

NARRATIVE: CASE EVENT DATE: 20201215
